FAERS Safety Report 8749247 (Version 3)
Quarter: 2012Q4

REPORT INFORMATION
  Report Type: Spontaneous
  Country: IT (occurrence: None)
  Receive Date: 20120808
  Receipt Date: 20120821
  Transmission Date: 20130627
  Serious: Yes (Hospitalization, Other)
  Sender: FDA-Public Use
  Company Number: AUR-APL-2012-03291

PATIENT
  Age: 65 Year
  Sex: Female

DRUGS (8)
  1. RAMIPRIL [Suspect]
     Indication: HYPERTENSION
     Dosage: 5 MG/DAY, ORAL
     Route: 048
     Dates: start: 20070101, end: 20120719
  2. LASIX [Suspect]
     Indication: HYPERTENSION
     Dosage: 25 MG, DAILY, ORAL
     Route: 048
     Dates: start: 20070101, end: 20120719
  3. COUMADIN [Concomitant]
  4. BISOPROLOL FUMARATE [Concomitant]
  5. AMLODIPINE [Concomitant]
  6. LANSOPRAZOLE [Concomitant]
  7. LORAZEPAM [Concomitant]
  8. METFORMIN HYDROCHLORIDE [Concomitant]

REACTIONS (5)
  - Bradykinesia [None]
  - Hyponatraemia [None]
  - Bradyphrenia [None]
  - Fall [None]
  - Psychomotor retardation [None]
